FAERS Safety Report 7274552-0 (Version None)
Quarter: 2011Q1

REPORT INFORMATION
  Report Type: 
  Country: None (occurrence: None)
  Receive Date: 20110201
  Receipt Date: 20110201
  Transmission Date: 20110831
  Serious: Yes (Hospitalization)
  Sender: FDA-Public Use
  Company Number: None

PATIENT
  Sex: Male
  Weight: 60.6 kg

DRUGS (13)
  1. EVEROLIMUS (RAD001) 5MG NOVARTIS [Suspect]
     Indication: DIFFUSE LARGE B-CELL LYMPHOMA
     Dosage: 5MG, QD, PO
     Route: 048
     Dates: start: 20101223, end: 20110110
  2. MORPHINE CONCENTRATE [Concomitant]
  3. LEXAPRO [Concomitant]
  4. PRILOSEC [Concomitant]
  5. BORTEZOMIB [Suspect]
     Indication: DIFFUSE LARGE B-CELL LYMPHOMA
     Dosage: 1.7 MG EVERY 4 DAYS, IV
     Route: 042
     Dates: start: 20101223, end: 20110103
  6. OXYCODONE [Concomitant]
  7. VICODIN ES [Concomitant]
  8. NABUMETONE [Concomitant]
  9. RITALIN [Concomitant]
  10. COMPAZINE [Concomitant]
  11. AMBIEN [Concomitant]
  12. ZOFRAN [Concomitant]
  13. DULCOLAX [Concomitant]

REACTIONS (9)
  - SYNCOPE [None]
  - DEHYDRATION [None]
  - FOOT FRACTURE [None]
  - PANCREATITIS ACUTE [None]
  - BLOOD BILIRUBIN INCREASED [None]
  - NEOPLASM MALIGNANT [None]
  - THROMBOCYTOPENIA [None]
  - DIFFUSE LARGE B-CELL LYMPHOMA [None]
  - CHILLS [None]
